FAERS Safety Report 13468529 (Version 2)
Quarter: 2017Q2

REPORT INFORMATION
  Report Type: Spontaneous
  Country: PT (occurrence: PT)
  Receive Date: 20170421
  Receipt Date: 20170608
  Transmission Date: 20170830
  Serious: Yes (Life-Threatening)
  Sender: FDA-Public Use
  Company Number: PT-PFIZER INC-2017172104

PATIENT
  Age: 65 Year
  Sex: Male
  Weight: 71 kg

DRUGS (6)
  1. FLUOROURACILO [Concomitant]
     Active Substance: FLUOROURACIL
     Dosage: 4368 MG, 1X/DAY,CONTINUOUS INFUSION 48H
     Dates: start: 20170307
  2. LEVOFOLINATE SODIUM [Concomitant]
     Active Substance: LEVOLEUCOVORIN DISODIUM
     Dosage: 364 MG, 1X/DAY
     Route: 042
     Dates: start: 20170321
  3. ONDANSETRON [Concomitant]
     Active Substance: ONDANSETRON
     Dosage: 8 MG, 1X/DAY
     Route: 042
     Dates: start: 20170307
  4. DEXAMETHASONE. [Concomitant]
     Active Substance: DEXAMETHASONE
     Dosage: 10 MG, 1X/DAY
     Route: 042
     Dates: start: 20170307
  5. OXALIPLATIN. [Suspect]
     Active Substance: OXALIPLATIN
     Indication: COLON NEOPLASM
     Dosage: 85 MG/M2, 1X/DAY
     Route: 042
     Dates: start: 20170307
  6. FLUOROURACILO [Concomitant]
     Active Substance: FLUOROURACIL
     Dosage: 728 MG, UNK
     Route: 042
     Dates: start: 20170321

REACTIONS (5)
  - Pyrexia [Recovered/Resolved]
  - Apathy [Recovered/Resolved]
  - Pallor [Recovered/Resolved]
  - Erythema [Recovered/Resolved]
  - Tremor [Recovered/Resolved]

NARRATIVE: CASE EVENT DATE: 20170321
